FAERS Safety Report 5314850-0 (Version None)
Quarter: 2007Q2

REPORT INFORMATION
  Report Type: 
  Country: None (occurrence: None)
  Receive Date: 20070426
  Receipt Date: 20070416
  Transmission Date: 20071010
  Serious: Yes (Hospitalization)
  Sender: FDA-Public Use
  Company Number: 2007BI004536

PATIENT
  Age: 64 Year
  Sex: Female

DRUGS (7)
  1. AVONEX [Suspect]
     Indication: MULTIPLE SCLEROSIS
     Dosage: 30 UG; QW; IM
     Route: 030
     Dates: start: 19961201, end: 20030101
  2. AVONEX [Suspect]
     Indication: MULTIPLE SCLEROSIS
     Dosage: 30 UG; QW; IM
     Route: 030
     Dates: start: 20030101
  3. ARICEPT [Concomitant]
  4. BACLOFEN [Concomitant]
  5. ELAVIL [Concomitant]
  6. MESTINON [Concomitant]
  7. PROZAC [Concomitant]

REACTIONS (2)
  - BREAST COSMETIC SURGERY [None]
  - PROCEDURAL PAIN [None]
